FAERS Safety Report 6227434-7 (Version None)
Quarter: 2009Q2

REPORT INFORMATION
  Report Type: 
  Country: None (occurrence: None)
  Receive Date: 20090612
  Receipt Date: 20090601
  Transmission Date: 20091009
  Serious: Yes (Life-Threatening)
  Sender: FDA-Public Use
  Company Number: US-WATSON-2009-03960

PATIENT
  Age: 74 Year
  Sex: Male

DRUGS (1)
  1. HALOPERIDOL LACTATE [Suspect]
     Indication: AGITATION
     Dosage: 2 MG, SINGLE
     Route: 042

REACTIONS (1)
  - TORSADE DE POINTES [None]
